FAERS Safety Report 5276767-X (Version None)
Quarter: 2007Q1

REPORT INFORMATION
  Report Type: 
  Country: None (occurrence: None)
  Receive Date: 20070327
  Receipt Date: 20070315
  Transmission Date: 20070707
  Serious: Yes (Hospitalization, Other)
  Sender: FDA-Public Use
  Company Number: PHHO2006US11916

PATIENT
  Age: 50 Year
  Sex: Female
  Weight: 101.2 kg

DRUGS (16)
  1. CELLCEPT [Suspect]
     Indication: RENAL TRANSPLANT
     Dosage: 750 MG, BID
     Route: 048
     Dates: start: 20060614, end: 20060724
  2. NEORAL [Suspect]
     Indication: RENAL TRANSPLANT
     Dosage: 200 MG, BID
     Route: 048
     Dates: start: 20060614, end: 20060721
  3. PREDNISONE [Suspect]
     Dosage: 100 MG, BID
     Route: 048
  4. PROGRAF [Suspect]
     Indication: RENAL TRANSPLANT
     Dosage: 8 MG, BID
     Route: 048
  5. IRON [Concomitant]
  6. BACTRIM [Concomitant]
  7. MULTI-VITAMINS [Concomitant]
  8. PANTOPRAZOLE SODIUM [Concomitant]
  9. GLIPIZIDE [Concomitant]
  10. NOVOLOG [Concomitant]
  11. FLONASE [Concomitant]
  12. AMLODIPINE [Concomitant]
  13. DOXYCYCLINE [Concomitant]
  14. LASIX [Concomitant]
  15. SOLU-MEDROL [Suspect]
     Dosage: 500 MG
     Route: 042
  16. HEMODIALYSIS [Concomitant]

REACTIONS (5)
  - COMPLICATIONS OF TRANSPLANTED KIDNEY [None]
  - DIABETES MELLITUS [None]
  - KIDNEY TRANSPLANT REJECTION [None]
  - RENAL TUBULAR NECROSIS [None]
  - URINE OUTPUT DECREASED [None]
